FAERS Safety Report 6198852-0 (Version None)
Quarter: 2009Q2

REPORT INFORMATION
  Report Type: 
  Country: None (occurrence: None)
  Receive Date: 20090522
  Receipt Date: 20090521
  Transmission Date: 20091009
  Serious: Yes (Hospitalization, Other)
  Sender: FDA-Public Use
  Company Number: US-BIOGENIDEC-2008BI030063

PATIENT
  Sex: Female

DRUGS (2)
  1. AVONEX [Suspect]
     Indication: MULTIPLE SCLEROSIS
     Route: 030
     Dates: start: 20070423, end: 20081124
  2. AVONEX [Suspect]
     Route: 030
     Dates: start: 20090105

REACTIONS (9)
  - ANAEMIA [None]
  - BLADDER DISORDER [None]
  - BREAST HYPERPLASIA [None]
  - FAECES DISCOLOURED [None]
  - FIBROCYSTIC BREAST DISEASE [None]
  - GASTROINTESTINAL HAEMORRHAGE [None]
  - IMPLANT SITE REACTION [None]
  - PRECANCEROUS CELLS PRESENT [None]
  - VULVOVAGINAL PRURITUS [None]
